FAERS Safety Report 10279535 (Version 1)
Quarter: 2014Q3

REPORT INFORMATION
  Report Type: Spontaneous
  Country: CA (occurrence: CA)
  Receive Date: 20140707
  Receipt Date: 20140707
  Transmission Date: 20150326
  Serious: Yes (Hospitalization)
  Sender: FDA-Public Use
  Company Number: CA-009507513-1407CAN002136

PATIENT
  Age: 57 Year
  Sex: Male

DRUGS (1)
  1. TEMODAL [Suspect]
     Active Substance: TEMOZOLOMIDE
     Dosage: 100 MG, DAILY (DIN: 2241093, 2241094, 2241095, 2241096, 2312794)
     Route: 048
     Dates: start: 201402

REACTIONS (3)
  - Adverse event [Unknown]
  - Drug dose omission [Unknown]
  - Palliative care [Unknown]

NARRATIVE: CASE EVENT DATE: 20140612
